FAERS Safety Report 5013884-3 (Version None)
Quarter: 2006Q2

REPORT INFORMATION
  Report Type: 
  Country: None (occurrence: None)
  Receive Date: 20060525
  Receipt Date: 20060512
  Transmission Date: 20061013
  Serious: Yes (Hospitalization)
  Sender: FDA-Public Use
  Company Number: 2004233570FR

PATIENT
  Age: 17 Year
  Sex: Male

DRUGS (2)
  1. GENOTROPIN [Suspect]
     Indication: PRADER-WILLI SYNDROME
     Dosage: 2.73 MG( 12MG, 1 IN 1 D), SUBCUTANEOUS
     Route: 058
     Dates: start: 20030224, end: 20040720
  2. ANDROTARDYL                   (TESTOSTERONE ENANTATE) [Concomitant]

REACTIONS (3)
  - CONDITION AGGRAVATED [None]
  - PULMONARY HYPERTENSION [None]
  - RESPIRATORY DISORDER [None]
